FAERS Safety Report 4548222-3 (Version None)
Quarter: 2005Q1

REPORT INFORMATION
  Report Type: 
  Country: None (occurrence: None)
  Receive Date: 20050105
  Receipt Date: 20050105
  Transmission Date: 20050727
  Serious: Yes (Hospitalization)
  Sender: FDA-Public Use
  Company Number: None

PATIENT
  Age: 37 Year
  Sex: Female
  Weight: 136.0791 kg

DRUGS (1)
  1. ZOSYN [Suspect]
     Indication: POSTOPERATIVE INFECTION
     Dosage: 4.5GM Q 8 HOURS IV
     Route: 042
     Dates: start: 20041216, end: 20041221

REACTIONS (1)
  - NEUTROPENIA [None]
